FAERS Safety Report 4470317-3 (Version None)
Quarter: 2004Q3

REPORT INFORMATION
  Report Type: 
  Country: None (occurrence: None)
  Receive Date: 20040910
  Receipt Date: 20040621
  Transmission Date: 20050211
  Serious: No
  Sender: FDA-Public Use
  Company Number: 2004-00105

PATIENT
  Age: 64 Year
  Sex: Female
  Weight: 42.6 kg

DRUGS (3)
  1. VELCADE [Suspect]
     Indication: MULTIPLE MYELOMA
     Dosage: 1.40 MG ; 1.60 MG : INTRAVENOUS
     Route: 042
     Dates: start: 20040606, end: 20040611
  2. VELCADE [Suspect]
     Indication: MULTIPLE MYELOMA
     Dosage: 1.40 MG ; 1.60 MG : INTRAVENOUS
     Route: 042
     Dates: start: 20040615, end: 20040617
  3. DECADRON [Concomitant]

REACTIONS (2)
  - BURNING SENSATION [None]
  - VEIN DISCOLOURATION [None]
